FAERS Safety Report 4295643-2 (Version None)
Quarter: 2004Q1

REPORT INFORMATION
  Report Type: 
  Country: None (occurrence: None)
  Receive Date: 20040216
  Receipt Date: 20030806
  Transmission Date: 20041129
  Serious: No
  Sender: FDA-Public Use
  Company Number: US-GLAXOSMITHKLINE-A0419750A

PATIENT

DRUGS (2)
  1. PAXIL [Suspect]
     Dosage: 20MG UNKNOWN
     Route: 048
  2. XANAX [Suspect]
     Dosage: .25MG UNKNOWN

REACTIONS (1)
  - MUSCLE TWITCHING [None]
